FAERS Safety Report 7585341-1 (Version None)
Quarter: 2011Q3

REPORT INFORMATION
  Report Type: 
  Country: None (occurrence: None)
  Receive Date: 20110701
  Receipt Date: 20090108
  Transmission Date: 20111222
  Serious: Yes (Death, Other)
  Sender: FDA-Public Use
  Company Number: US-BAYER-200910046NA

PATIENT
  Age: 83 Year
  Sex: Male
  Weight: 68.5 kg

DRUGS (16)
  1. TRASYLOL [Suspect]
     Dosage: 50 ML/HR OVER A FIVE HOUR DURATION
     Route: 042
     Dates: start: 20060928, end: 20060928
  2. ACETYLSALICYLIC ACID SRT [Concomitant]
     Dosage: 81 MG, QD, LONG TERM
     Route: 048
  3. CONTRAST MEDIA [Concomitant]
     Indication: CATHETERISATION CARDIAC
     Dosage: UNK
     Dates: start: 20060927
  4. TRASYLOL [Suspect]
     Indication: CORONARY ARTERY BYPASS
     Dosage: 200 ML, ONCE, LOADING DOSE
     Route: 042
     Dates: start: 20060928, end: 20060928
  5. SIMVASTATIN [Concomitant]
     Dosage: 10 MG, QD, LONG TERM
     Route: 048
  6. VANCOMYCIN [Concomitant]
     Route: 042
  7. COLCHICINE [Concomitant]
     Dosage: 0.6 MG, QD, LONG TERM
     Route: 048
  8. EPINEPHRINE [Concomitant]
     Route: 042
  9. HEPARIN [Concomitant]
     Route: 042
  10. FRESH FROZEN PLASMA [Concomitant]
     Dosage: 16 U, ONCE
     Dates: start: 20060928
  11. METOPROLOL TARTRATE [Concomitant]
     Route: 048
  12. CARDIOLITE [Concomitant]
     Indication: SCAN MYOCARDIAL PERFUSION
     Dosage: UNK UNK, ONCE
     Dates: start: 20060914
  13. PLATELETS [Concomitant]
     Dosage: 25 U, UNK
     Dates: start: 20060928
  14. TRIAMTERENE AND HYDROCHLOROTHIAZIDE [Concomitant]
     Dosage: 27.5/2.0 MG DAILY
     Route: 048
     Dates: start: 20020801
  15. PACKED RED BLOOD CELLS [Concomitant]
     Dosage: 17 U, ONCE
     Dates: start: 20060928
  16. LASIX [Concomitant]
     Dosage: 40 MG, QD
     Route: 048
     Dates: start: 20060601

REACTIONS (4)
  - UNEVALUABLE EVENT [None]
  - PAIN [None]
  - INJURY [None]
  - RENAL FAILURE [None]
